FAERS Safety Report 9066747 (Version 1)
Quarter: 2013Q1

REPORT INFORMATION
  Report Type: Spontaneous
  Country: US (occurrence: US)
  Receive Date: 20130214
  Receipt Date: 20130214
  Transmission Date: 20140127
  Serious: Yes (Death, Hospitalization)
  Sender: FDA-Public Use
  Company Number: US-GLAXOSMITHKLINE-A1010951A

PATIENT
  Age: 76 Year
  Sex: Male

DRUGS (15)
  1. ADVAIR [Suspect]
     Indication: ASTHMA
     Dosage: 1PUFF TWICE PER DAY
     Route: 055
     Dates: start: 2011, end: 20121129
  2. COREG [Suspect]
     Indication: HYPERTENSION
     Dosage: 3.125MG TWICE PER DAY
     Route: 048
     Dates: start: 2007, end: 20121129
  3. PLAVIX [Concomitant]
  4. LIPITOR [Concomitant]
  5. ACCUPRIL [Concomitant]
  6. NEURONTIN [Concomitant]
  7. ASPIRIN [Concomitant]
  8. ALLOPURINOL [Concomitant]
  9. NIACIN [Concomitant]
  10. FUROSEMIDE [Concomitant]
  11. RANITIDINE [Concomitant]
  12. SPIRIVA [Concomitant]
  13. LANTUS OPTIPEN [Concomitant]
  14. HUMALOG [Concomitant]
  15. DULERA [Concomitant]

REACTIONS (3)
  - Cardiac failure congestive [Fatal]
  - Pneumonia [Fatal]
  - Hospitalisation [Unknown]
